FAERS Safety Report 9689148 (Version 1)
Quarter: 2013Q4

REPORT INFORMATION
  Report Type: Spontaneous
  Country: US (occurrence: None)
  Receive Date: 20131113
  Receipt Date: 20131113
  Transmission Date: 20140711
  Serious: No
  Sender: FDA-Public Use
  Company Number: 2013TP000627

PATIENT
  Age: 16 Year
  Sex: Male

DRUGS (1)
  1. LIDODERM (5PCT) [Suspect]
     Indication: CHEST PAIN
     Dosage: TOP
     Dates: end: 2012

REACTIONS (2)
  - Pupils unequal [None]
  - Headache [None]
